FAERS Safety Report 26111991 (Version 1)
Quarter: 2025Q4

REPORT INFORMATION
  Report Type: Spontaneous
  Country: US (occurrence: US)
  Receive Date: 20251202
  Receipt Date: 20251202
  Transmission Date: 20260117
  Serious: No
  Sender: MYLAN
  Company Number: US-MYLANLABS-2025M1101082

PATIENT
  Sex: Female

DRUGS (4)
  1. NISOLDIPINE [Suspect]
     Active Substance: NISOLDIPINE
     Indication: Product used for unknown indication
     Dosage: UNK
  2. NISOLDIPINE [Suspect]
     Active Substance: NISOLDIPINE
     Dosage: UNK
     Route: 065
  3. NISOLDIPINE [Suspect]
     Active Substance: NISOLDIPINE
     Dosage: UNK
     Route: 065
  4. NISOLDIPINE [Suspect]
     Active Substance: NISOLDIPINE
     Dosage: UNK

REACTIONS (2)
  - Dizziness [Unknown]
  - Headache [Unknown]
